FAERS Safety Report 6358941-4 (Version None)
Quarter: 2009Q3

REPORT INFORMATION
  Report Type: 
  Country: None (occurrence: None)
  Receive Date: 20090914
  Receipt Date: 20090901
  Transmission Date: 20100115
  Serious: Yes (Other)
  Sender: FDA-Public Use
  Company Number: 373552

PATIENT
  Age: 62 Year
  Sex: Female

DRUGS (4)
  1. (DEXMEDETOMIDINE) [Suspect]
     Indication: SEDATIVE THERAPY
     Dosage: INTRAVENOUS
     Route: 042
     Dates: start: 20090723, end: 20090723
  2. NAROPIN [Suspect]
     Indication: SEDATIVE THERAPY
     Dosage: INTRAVENOUS
     Route: 042
     Dates: start: 20090723, end: 20090723
  3. ENALAPRIL MALEATE [Concomitant]
  4. ATORVASTATIN [Concomitant]

REACTIONS (3)
  - AGITATION [None]
  - HYPERHIDROSIS [None]
  - RESTLESS LEGS SYNDROME [None]
